FAERS Safety Report 9455574 (Version 1)
Quarter: 2013Q3

REPORT INFORMATION
  Report Type: Spontaneous
  Country: US (occurrence: US)
  Receive Date: 20130813
  Receipt Date: 20130813
  Transmission Date: 20140515
  Serious: Yes (Other)
  Sender: FDA-Public Use
  Company Number: US-PFIZER INC-2013233554

PATIENT
  Age: 52 Year
  Sex: Female

DRUGS (8)
  1. NEURONTIN [Suspect]
     Dosage: UNK
  2. LYRICA [Suspect]
     Dosage: UNK
  3. GABAPENTIN [Suspect]
     Dosage: UNK
  4. SERAX [Suspect]
  5. CYMBALTA [Suspect]
     Dosage: UNK
  6. BUSPAR [Suspect]
     Dosage: UNK
  7. DEPAKOTE [Suspect]
     Dosage: UNK
  8. PERCOCET [Suspect]

REACTIONS (4)
  - Suicidal behaviour [Unknown]
  - Apparent death [Unknown]
  - Cardiac disorder [Unknown]
  - Oedema [Unknown]
